FAERS Safety Report 8919309 (Version 1)
Quarter: 2012Q4

REPORT INFORMATION
  Report Type: 
  Country: US (occurrence: US)
  Receive Date: 20121121
  Receipt Date: 20121121
  Transmission Date: 20130627
  Serious: No
  Sender: FDA-Public Use
  Company Number: US-PFIZER INC-2012288346

PATIENT
  Age: 69 Year
  Sex: Female
  Weight: 61 kg

DRUGS (3)
  1. AMLODIPINE BESILATE [Suspect]
     Indication: BLOOD PRESSURE HIGH
     Dosage: 5 mg, UNK
     Dates: end: 2009
  2. AMLODIPINE BESILATE [Suspect]
     Dosage: 10 mg, UNK
     Dates: start: 2009, end: 2009
  3. AMLODIPINE BESILATE [Suspect]
     Dosage: two 5mg tablets, UNK
     Dates: start: 2009

REACTIONS (3)
  - Hand fracture [Unknown]
  - Blood pressure inadequately controlled [Unknown]
  - Malaise [Unknown]
